FAERS Safety Report 8433428-3 (Version None)
Quarter: 2012Q2

REPORT INFORMATION
  Report Type: 
  Country: None (occurrence: None)
  Receive Date: 20120613
  Receipt Date: 20120606
  Transmission Date: 20120825
  Serious: Yes (Other)
  Sender: FDA-Public Use
  Company Number: CA-BRISTOL-MYERS SQUIBB COMPANY-16587123

PATIENT
  Age: 73 Year
  Sex: Female

DRUGS (15)
  1. DETROL LA [Concomitant]
     Route: 048
     Dates: start: 20090101
  2. METFORMIN HCL [Concomitant]
     Route: 048
     Dates: start: 20000101
  3. ACETYLSALICYLIC ACID SRT [Concomitant]
     Route: 048
     Dates: start: 20000101
  4. ASCORBIC ACID [Concomitant]
     Route: 048
     Dates: start: 20120418
  5. DIAMICRON [Concomitant]
     Route: 048
     Dates: start: 20100101
  6. ONDANSETRON [Concomitant]
     Dosage: 8MG BID*3DAYS EACH CYCLE
     Route: 048
     Dates: start: 20120327
  7. CETUXIMAB [Suspect]
     Indication: NON-SMALL CELL LUNG CANCER
     Route: 042
     Dates: start: 20120327
  8. AVAPRO [Concomitant]
     Route: 048
     Dates: start: 20090101
  9. JANUVIA [Concomitant]
     Route: 042
     Dates: start: 20100101
  10. VINORELBINE [Suspect]
     Indication: NON-SMALL CELL LUNG CANCER
     Route: 042
     Dates: start: 20120327
  11. DEXAMETHASONE [Concomitant]
     Dosage: 4MG BID*3 DAYS EACH CYCLE
     Route: 048
     Dates: start: 20120327
  12. CISPLATIN [Suspect]
     Indication: NON-SMALL CELL LUNG CANCER
     Route: 042
     Dates: start: 20120327
  13. CRESTOR [Concomitant]
     Route: 048
     Dates: start: 20100101
  14. VITAMIN D [Concomitant]
     Dates: start: 20110101
  15. SYNTHROID [Concomitant]
     Dosage: ALTERNATING DAYS
     Dates: start: 19990101

REACTIONS (1)
  - PULMONARY EMBOLISM [None]
